FAERS Safety Report 7635484-9 (Version None)
Quarter: 2011Q3

REPORT INFORMATION
  Report Type: 
  Country: None (occurrence: None)
  Receive Date: 20110726
  Receipt Date: 20110726
  Transmission Date: 20111222
  Serious: Yes (Life-Threatening)
  Sender: FDA-Public Use
  Company Number: None

PATIENT
  Age: 70 Year
  Sex: Female

DRUGS (1)
  1. FONDAPARINUX SODIUM [Suspect]
     Indication: PULMONARY EMBOLISM
     Dosage: 7.5MG
     Route: 058
     Dates: start: 20110607, end: 20110610

REACTIONS (2)
  - BLINDNESS UNILATERAL [None]
  - CEREBRAL HAEMORRHAGE [None]
